FAERS Safety Report 6095644-8 (Version None)
Quarter: 2009Q1

REPORT INFORMATION
  Report Type: 
  Country: None (occurrence: None)
  Receive Date: 20090227
  Receipt Date: 20080513
  Transmission Date: 20090719
  Serious: No
  Sender: FDA-Public Use
  Company Number: A0727713A

PATIENT
  Age: 55 Year
  Sex: Male

DRUGS (5)
  1. LAMICTAL [Suspect]
     Indication: MOOD SWINGS
     Dosage: 200MG PER DAY
     Route: 048
     Dates: start: 20060101
  2. HALDOL [Concomitant]
  3. CLONAZEPAM [Concomitant]
  4. DIURETIC [Concomitant]
  5. TRICOR [Concomitant]

REACTIONS (1)
  - RASH [None]
